FAERS Safety Report 9752529 (Version 1)
Quarter: 2013Q4

REPORT INFORMATION
  Report Type: Spontaneous
  Country: US (occurrence: US)
  Receive Date: 20131213
  Receipt Date: 20131213
  Transmission Date: 20140711
  Serious: No
  Sender: FDA-Public Use
  Company Number: US-TEVA-449941USA

PATIENT
  Sex: Female

DRUGS (1)
  1. CLARAVIS [Suspect]
     Dates: start: 20120531, end: 20130107

REACTIONS (3)
  - Lip dry [Unknown]
  - Lip exfoliation [Unknown]
  - Lip haemorrhage [Unknown]
